FAERS Safety Report 7694516-2 (Version None)
Quarter: 2011Q3

REPORT INFORMATION
  Report Type: 
  Country: None (occurrence: None)
  Receive Date: 20110819
  Receipt Date: 20110817
  Transmission Date: 20111222
  Serious: Yes (Hospitalization)
  Sender: FDA-Public Use
  Company Number: PHHO2011GR14005

PATIENT
  Sex: Female
  Weight: 60.2 kg

DRUGS (5)
  1. BLINDED NO TREATMENT RECEIVED [Suspect]
     Indication: BREAST CANCER METASTATIC
     Dosage: CODE NOT BROKEN
  2. COMPARATOR TRASTUZUMAB [Suspect]
     Indication: BREAST CANCER METASTATIC
     Dosage: CODE NOT BROKEN
  3. COMPARATOR VINORELBINE [Suspect]
     Indication: BREAST CANCER METASTATIC
     Dosage: CODE NOT BROKEN
  4. AFINITOR [Suspect]
     Indication: BREAST CANCER METASTATIC
     Dosage: CODE NOT BROKEN
  5. PLACEBO [Suspect]
     Indication: BREAST CANCER METASTATIC
     Dosage: CODE NOT BROKEN

REACTIONS (1)
  - INFECTION [None]
